FAERS Safety Report 12420055 (Version 1)
Quarter: 2016Q2

REPORT INFORMATION
  Report Type: Spontaneous
  Country: US (occurrence: US)
  Receive Date: 20160531
  Receipt Date: 20160531
  Transmission Date: 20160815
  Serious: Yes (Other)
  Sender: FDA-Public Use
  Company Number: US-GLAXOSMITHKLINE-US2016GSK067357

PATIENT
  Age: 57 Year
  Sex: Male

DRUGS (1)
  1. ADVAIR HFA [Suspect]
     Active Substance: FLUTICASONE PROPIONATE\SALMETEROL XINAFOATE
     Indication: ASTHMA
     Dosage: UNK
     Dates: start: 2006

REACTIONS (5)
  - Loss of consciousness [Unknown]
  - Dizziness [Unknown]
  - Fall [Unknown]
  - Rotator cuff syndrome [Unknown]
  - Concussion [Unknown]

NARRATIVE: CASE EVENT DATE: 20131226
